FAERS Safety Report 7677906-3 (Version None)
Quarter: 2011Q3

REPORT INFORMATION
  Report Type: 
  Country: None (occurrence: None)
  Receive Date: 20110811
  Receipt Date: 20110808
  Transmission Date: 20111222
  Serious: Yes (Hospitalization, Other)
  Sender: FDA-Public Use
  Company Number: US-MERCK-1008USA03501

PATIENT
  Age: 53 Year
  Sex: Female
  Weight: 71 kg

DRUGS (2)
  1. LEVOTHROID [Concomitant]
     Indication: THYROID DISORDER
     Route: 065
     Dates: start: 19800101
  2. FOSAMAX [Suspect]
     Indication: OSTEOPOROSIS
     Route: 048
     Dates: start: 20020101, end: 20060511

REACTIONS (36)
  - EMPHYSEMA [None]
  - FALL [None]
  - LIMB INJURY [None]
  - IMPAIRED HEALING [None]
  - RHINITIS [None]
  - GASTROOESOPHAGEAL REFLUX DISEASE [None]
  - THYROID NEOPLASM [None]
  - CONDUCTION DISORDER [None]
  - CELLULITIS [None]
  - OSTEONECROSIS OF JAW [None]
  - NASAL SEPTUM DEVIATION [None]
  - POLLAKIURIA [None]
  - DEPRESSION [None]
  - OSTEOMYELITIS ACUTE [None]
  - DENTAL CARIES [None]
  - PERIODONTITIS [None]
  - TOOTH EXTRACTION [None]
  - INSOMNIA [None]
  - BREAST DISORDER [None]
  - ABSCESS SOFT TISSUE [None]
  - OTITIS MEDIA ACUTE [None]
  - HYPERLIPIDAEMIA [None]
  - GINGIVAL DISORDER [None]
  - THYROID CANCER [None]
  - ANAEMIA [None]
  - INJURY [None]
  - HYPERTENSION [None]
  - TOOTH IMPACTED [None]
  - HERPES SIMPLEX [None]
  - SINUSITIS [None]
  - HUMERUS FRACTURE [None]
  - METASTASES TO NECK [None]
  - PAIN [None]
  - ORAL INFECTION [None]
  - SNORING [None]
  - VASCULAR PSEUDOANEURYSM [None]
